FAERS Safety Report 7294138-1 (Version None)
Quarter: 2011Q1

REPORT INFORMATION
  Report Type: 
  Country: None (occurrence: None)
  Receive Date: 20110215
  Receipt Date: 20091216
  Transmission Date: 20110831
  Serious: Yes (Other)
  Sender: FDA-Public Use
  Company Number: HU-GENENTECH-313796

PATIENT

DRUGS (4)
  1. RITUXIMAB [Suspect]
     Indication: AUTOIMMUNE DISORDER
     Dosage: UNK
     Route: 065
  2. ETANERCEPT [Suspect]
     Indication: AUTOIMMUNE DISORDER
     Dosage: UNK
     Route: 065
  3. ADALIMUMAB [Suspect]
     Indication: AUTOIMMUNE DISORDER
     Dosage: UNK
     Route: 065
  4. INFLIXIMAB [Suspect]
     Indication: AUTOIMMUNE DISORDER
     Dosage: UNK
     Route: 065

REACTIONS (10)
  - FUNGAL INFECTION [None]
  - SEBORRHOEIC KERATOSIS [None]
  - HERPES SIMPLEX [None]
  - KERATOACANTHOMA [None]
  - ERYSIPELAS [None]
  - BASAL CELL CARCINOMA [None]
  - SKIN PAPILLOMA [None]
  - HYPERSENSITIVITY [None]
  - ERYTHEMA MIGRANS [None]
  - HERPES ZOSTER [None]
